FAERS Safety Report 10790314 (Version 1)
Quarter: 2015Q1

REPORT INFORMATION
  Report Type: Spontaneous
  Country: US (occurrence: US)
  Receive Date: 20150212
  Receipt Date: 20150212
  Transmission Date: 20150721
  Serious: Yes (Hospitalization, Disabling, Other)
  Sender: FDA-Public Use
  Company Number: US-CELGENE-163-21880-14052040

PATIENT
  Age: 64 Year
  Sex: Male

DRUGS (6)
  1. REVLIMID [Suspect]
     Active Substance: LENALIDOMIDE
     Route: 048
     Dates: start: 201309, end: 201312
  2. REVLIMID [Suspect]
     Active Substance: LENALIDOMIDE
     Indication: PLASMA CELL MYELOMA
     Route: 048
     Dates: start: 201305
  3. ASPIRIN. [Concomitant]
     Active Substance: ASPIRIN
     Indication: PROPHYLAXIS
     Route: 065
     Dates: start: 201304
  4. CYCLOPHOSPHAMIDE. [Concomitant]
     Active Substance: CYCLOPHOSPHAMIDE
     Indication: PRODUCT USED FOR UNKNOWN INDICATION
     Route: 065
  5. BORTEZOMIB [Concomitant]
     Active Substance: BORTEZOMIB
     Indication: PRODUCT USED FOR UNKNOWN INDICATION
     Route: 065
  6. DEXAMETHASONE. [Concomitant]
     Active Substance: DEXAMETHASONE
     Indication: PRODUCT USED FOR UNKNOWN INDICATION
     Route: 065

REACTIONS (7)
  - Upper respiratory tract infection [Recovered/Resolved]
  - Neuropathy peripheral [Unknown]
  - Deep vein thrombosis [Recovered/Resolved]
  - Blood calcium increased [Recovered/Resolved]
  - Platelet count decreased [Not Recovered/Not Resolved]
  - Plasma cell myeloma recurrent [Unknown]
  - Blood creatinine increased [Not Recovered/Not Resolved]

NARRATIVE: CASE EVENT DATE: 201312
